FAERS Safety Report 8345070-3 (Version None)
Quarter: 2012Q2

REPORT INFORMATION
  Report Type: 
  Country: None (occurrence: None)
  Receive Date: 20120508
  Receipt Date: 20120430
  Transmission Date: 20120825
  Serious: Yes (Other)
  Sender: FDA-Public Use
  Company Number: US-BAYER-2012-043061

PATIENT

DRUGS (2)
  1. NAPROXEN SODIUM [Suspect]
     Indication: DYSMENORRHOEA
     Dosage: 4 DF, UNK
     Route: 048
  2. IBUPROFEN (ADVIL) [Concomitant]

REACTIONS (2)
  - DYSMENORRHOEA [None]
  - ANXIETY [None]
